FAERS Safety Report 23587378 (Version 5)
Quarter: 2024Q4

REPORT INFORMATION
  Report Type: Spontaneous
  Country: US (occurrence: US)
  Receive Date: 20240301
  Receipt Date: 20241203
  Transmission Date: 20250115
  Serious: Yes (Hospitalization, Other)
  Sender: PFIZER
  Company Number: US-PFIZER INC-PV202300020719

PATIENT
  Age: 85 Year
  Sex: Female

DRUGS (1)
  1. IBRANCE [Suspect]
     Active Substance: PALBOCICLIB
     Indication: Breast cancer metastatic
     Dosage: 75 MG

REACTIONS (7)
  - Cerebrovascular accident [Unknown]
  - Sciatica [Unknown]
  - Gait inability [Unknown]
  - Speech disorder [Unknown]
  - Product dose omission issue [Unknown]
  - Product dispensing error [Unknown]
  - Product dose omission in error [Unknown]
